FAERS Safety Report 25211857 (Version 1)
Quarter: 2025Q2

REPORT INFORMATION
  Report Type: Spontaneous
  Country: US (occurrence: US)
  Receive Date: 20250418
  Receipt Date: 20250418
  Transmission Date: 20250716
  Serious: No
  Sender: ROCHE
  Company Number: US-ROCHE-10000256913

PATIENT
  Sex: Female

DRUGS (15)
  1. ACTEMRA ACTPEN [Suspect]
     Active Substance: TOCILIZUMAB
     Indication: Rheumatoid arthritis
     Route: 058
  2. CAPLYTA [Concomitant]
     Active Substance: LUMATEPERONE
  3. CARVEDILOL [Concomitant]
     Active Substance: CARVEDILOL
  4. CLONAZEPAM [Concomitant]
     Active Substance: CLONAZEPAM
  5. ESCITALOPRAM [Concomitant]
     Active Substance: ESCITALOPRAM OXALATE
  6. ESZOPICLONE [Concomitant]
     Active Substance: ESZOPICLONE
  7. FOLIC ACID [Concomitant]
     Active Substance: FOLIC ACID
  8. LEVOTHYROXINE [Concomitant]
     Active Substance: LEVOTHYROXINE
  9. LIDOCAINE [Concomitant]
     Active Substance: LIDOCAINE
  10. LOSARTAN [Concomitant]
     Active Substance: LOSARTAN
  11. LURASIDONE [Concomitant]
     Active Substance: LURASIDONE
  12. METHOTREXATE [Concomitant]
     Active Substance: METHOTREXATE
  13. oxybutynin c [Concomitant]
  14. PRIMIDONE [Concomitant]
     Active Substance: PRIMIDONE
  15. ROSUVASTATIN [Concomitant]
     Active Substance: ROSUVASTATIN

REACTIONS (5)
  - Depression [Not Recovered/Not Resolved]
  - Fatigue [Not Recovered/Not Resolved]
  - Asthenia [Not Recovered/Not Resolved]
  - Feeling abnormal [Not Recovered/Not Resolved]
  - Joint range of motion decreased [Not Recovered/Not Resolved]
